FAERS Safety Report 5207938-6 (Version None)
Quarter: 2007Q1

REPORT INFORMATION
  Report Type: 
  Country: None (occurrence: None)
  Receive Date: 20070115
  Receipt Date: 20070104
  Transmission Date: 20070707
  Serious: Yes (Hospitalization)
  Sender: FDA-Public Use
  Company Number: US-ELI_LILLY_AND_COMPANY-US200605006017

PATIENT
  Age: 47 Year
  Sex: Female
  Weight: 77.097 kg

DRUGS (3)
  1. ZYPREXA [Suspect]
     Dosage: UNK, 2/D
     Dates: start: 19970101, end: 19981201
  2. ATENOLOL [Concomitant]
     Dates: start: 19950101, end: 20060101
  3. LUNELLE [Concomitant]
     Dates: start: 20040101

REACTIONS (3)
  - DIABETES MELLITUS [None]
  - VASCULAR BYPASS GRAFT [None]
  - WEIGHT INCREASED [None]
